FAERS Safety Report 25969088 (Version 1)
Quarter: 2025Q4

REPORT INFORMATION
  Report Type: Spontaneous
  Country: US (occurrence: None)
  Receive Date: 20251027
  Receipt Date: 20251027
  Transmission Date: 20260117
  Serious: Yes (Life-Threatening)
  Sender: FDA-CTU
  Company Number: None

PATIENT
  Age: 19 Year
  Sex: Male
  Weight: 76.5 kg

DRUGS (2)
  1. UZEDY [Suspect]
     Active Substance: RISPERIDONE
     Dosage: OTHER FREQUENCY : ONCE MONTHLY;?
     Route: 058
  2. UZEDY [Concomitant]
     Active Substance: RISPERIDONE
     Dates: start: 20250825, end: 20250925

REACTIONS (3)
  - Muscle twitching [None]
  - Muscle rigidity [None]
  - Swollen tongue [None]

NARRATIVE: CASE EVENT DATE: 20250930
